FAERS Safety Report 7563920-5 (Version None)
Quarter: 2011Q2

REPORT INFORMATION
  Report Type: 
  Country: None (occurrence: None)
  Receive Date: 20110622
  Receipt Date: 20110613
  Transmission Date: 20111010
  Serious: Yes (Death, Hospitalization, Other)
  Sender: FDA-Public Use
  Company Number: GB-TEVA-285449ISR

PATIENT
  Sex: Male

DRUGS (6)
  1. BUSULFAN [Concomitant]
  2. CYCLOSPORINE [Concomitant]
     Indication: GRAFT VERSUS HOST DISEASE
  3. THIOTEPA [Concomitant]
  4. CYCLOPHOSPHAMIDE [Concomitant]
  5. ALEMTUZUMAB [Concomitant]
  6. METHOTREXATE [Suspect]
     Indication: GRAFT VERSUS HOST DISEASE

REACTIONS (13)
  - MUCOSAL INFLAMMATION [None]
  - COUGH [None]
  - CYTOMEGALOVIRUS INFECTION [None]
  - IDIOPATHIC PNEUMONIA SYNDROME [None]
  - CARDIO-RESPIRATORY ARREST [None]
  - RESPIRATORY DISTRESS [None]
  - FUNGAL INFECTION [None]
  - LUNG DISORDER [None]
  - FEBRILE NEUTROPENIA [None]
  - METAPNEUMOVIRUS INFECTION [None]
  - URINARY TRACT INFECTION [None]
  - PERIORBITAL OEDEMA [None]
  - WEIGHT DECREASED [None]
